FAERS Safety Report 7792460 (Version 4)
Quarter: 2014Q2

REPORT INFORMATION
  Report Type: Spontaneous
  Country: US (occurrence: US)
  Receive Date: 20110131
  Receipt Date: 20140501
  Transmission Date: 20141212
  Serious: Yes (Hospitalization)
  Sender: FDA-Public Use
  Company Number: US-BAYER-2011-006789

PATIENT
  Age: 43 Year
  Sex: Female
  Weight: 88.44 kg

DRUGS (1)
  1. YASMIN [Suspect]
     Indication: CONTRACEPTION
     Dosage: UNK
     Dates: start: 200611, end: 200712

REACTIONS (9)
  - Deep vein thrombosis [None]
  - Pulmonary embolism [None]
  - Deep vein thrombosis [None]
  - Thrombophlebitis superficial [None]
  - Pain [None]
  - Emotional distress [None]
  - Anxiety [None]
  - Vasodilatation [None]
  - Gait disturbance [None]
